FAERS Safety Report 8933926 (Version 2)
Quarter: 2013Q1

REPORT INFORMATION
  Report Type: Report from Study
  Country: ZA (occurrence: ZA)
  Receive Date: 20121129
  Receipt Date: 20130123
  Transmission Date: 20140127
  Serious: Yes (Death, Hospitalization)
  Sender: FDA-Public Use
  Company Number: ZA-ROCHE-1161877

PATIENT
  Age: 58 None
  Sex: Female

DRUGS (11)
  1. METHOXY POLYETHYLENE GLYCOL-EPOETIN BETA [Suspect]
     Indication: NEPHROGENIC ANAEMIA
     Route: 065
     Dates: start: 201109, end: 201208
  2. METHOXY POLYETHYLENE GLYCOL-EPOETIN BETA [Suspect]
     Route: 058
     Dates: start: 201209, end: 201211
  3. NOVOMIX [Concomitant]
     Dosage: 18 U BD
     Route: 065
  4. ONE ALPHA [Concomitant]
     Route: 065
  5. TITRALAC [Concomitant]
     Dosage: WITH MEALS
     Route: 065
  6. LASIX [Concomitant]
     Dosage: IN MORNING
     Route: 065
  7. LASIX [Concomitant]
     Dosage: IN NOON
     Route: 065
  8. LONITEN [Concomitant]
     Route: 065
  9. CARLOC [Concomitant]
     Route: 065
  10. CARDURA XL [Concomitant]
     Route: 065
  11. ASPAVOR [Concomitant]
     Dosage: EVERY NIGHT
     Route: 065

REACTIONS (3)
  - Infection [Not Recovered/Not Resolved]
  - Eating disorder [Unknown]
  - Death [Fatal]
